FAERS Safety Report 13148774 (Version 1)
Quarter: 2017Q1

REPORT INFORMATION
  Report Type: Spontaneous
  Country: US (occurrence: US)
  Receive Date: 20170125
  Receipt Date: 20170125
  Transmission Date: 20170428
  Serious: No
  Sender: FDA-Public Use
  Company Number: US-PFIZER INC-2017030955

PATIENT
  Age: 49 Year
  Sex: Female
  Weight: 57 kg

DRUGS (2)
  1. CHANTIX [Suspect]
     Active Substance: VARENICLINE TARTRATE
     Indication: SMOKING CESSATION THERAPY
     Dosage: 1 MG, 2X/DAY
     Route: 048
     Dates: start: 20160909
  2. METHYLPRED [Concomitant]
     Active Substance: METHYLPREDNISOLONE
     Indication: MENOPAUSE
     Dosage: 4 MG, 1X/DAY
     Route: 048
     Dates: start: 2016

REACTIONS (3)
  - Eye allergy [Unknown]
  - Nausea [Unknown]
  - Stress [Unknown]
